FAERS Safety Report 16828146 (Version 1)
Quarter: 2019Q4

REPORT INFORMATION
  Report Type: Spontaneous
  Country: US (occurrence: US)
  Receive Date: 20190919
  Receipt Date: 20190919
  Transmission Date: 20200122
  Serious: Yes (Hospitalization)
  Sender: FDA-Public Use
  Company Number: None

PATIENT
  Age: 54 Year
  Sex: Male

DRUGS (5)
  1. FLUOXETINE CAP 10 MG [Concomitant]
  2. ASPIRIN CHW/81 MG [Concomitant]
  3. MULTIVITAMIN CAP [Concomitant]
  4. HUMIRA [Suspect]
     Active Substance: ADALIMUMAB
     Indication: CROHN^S DISEASE
     Dosage: ?          OTHER FREQUENCY:ON DAY 1, 2, + 15;?
     Route: 058
     Dates: start: 20190826
  5. SAW PALMETTO CAP 500 MG [Concomitant]

REACTIONS (5)
  - Body temperature increased [None]
  - Abdominal pain [None]
  - Asthenia [None]
  - Diarrhoea [None]
  - Condition aggravated [None]

NARRATIVE: CASE EVENT DATE: 20190608
